FAERS Safety Report 6913927-3 (Version None)
Quarter: 2010Q3

REPORT INFORMATION
  Report Type: 
  Country: None (occurrence: None)
  Receive Date: 20100806
  Receipt Date: 20100806
  Transmission Date: 20110219
  Serious: Yes (Other)
  Sender: FDA-Public Use
  Company Number: None

PATIENT
  Age: 5 Year
  Sex: Female
  Weight: 27 kg

DRUGS (1)
  1. LAMICTAL ODT [Suspect]
     Indication: CONVULSION

REACTIONS (1)
  - PRODUCT SUBSTITUTION ISSUE [None]
